FAERS Safety Report 18217165 (Version 3)
Quarter: 2020Q3

REPORT INFORMATION
  Report Type: Spontaneous
  Country: US (occurrence: US)
  Receive Date: 20200901
  Receipt Date: 20200928
  Transmission Date: 20201103
  Serious: No
  Sender: FDA-Public Use
  Company Number: US-PFIZER INC-2020336537

PATIENT
  Age: 63 Year
  Sex: Female
  Weight: 72.57 kg

DRUGS (4)
  1. XANAX XR [Suspect]
     Active Substance: ALPRAZOLAM
     Dosage: 1 MG, DAILY (0.5MG TWO A DAY)
  2. XANAX XR [Suspect]
     Active Substance: ALPRAZOLAM
     Dosage: 1 MG(2 UNITS OF 0.5 MG)
  3. XANAX XR [Suspect]
     Active Substance: ALPRAZOLAM
     Dosage: 1 MG, 1X/DAY
  4. XANAX XR [Suspect]
     Active Substance: ALPRAZOLAM
     Dosage: 2 MG, 1X/DAY
     Dates: start: 2020

REACTIONS (1)
  - Somnolence [Unknown]

NARRATIVE: CASE EVENT DATE: 2020
